FAERS Safety Report 8844620 (Version 1)
Quarter: 2012Q4

REPORT INFORMATION
  Report Type: Spontaneous
  Country: US (occurrence: None)
  Receive Date: 20121012
  Receipt Date: 20121012
  Transmission Date: 20130627
  Serious: Yes (Hospitalization, Other)
  Sender: FDA-Public Use
  Company Number: QSC-2012-0160

PATIENT
  Age: 4 Year
  Sex: Female

DRUGS (4)
  1. ADRENOCORTICOTROPIC HORMONE [Suspect]
     Indication: OPSOCLONUS MYOCLONUS
     Dosage: 14 IU, qod, Intramuscular
     Route: 030
     Dates: start: 200406, end: 20050118
  2. RITUXAN [Suspect]
     Dosage: UNK, Intravenous
     Route: 042
     Dates: end: 200407
  3. BACTRIM (SULFAMETHOXAZOLE, TRIMETHOPRIM) [Concomitant]
  4. ZANTAC (RANITIDINE HYDROCHLORIDE) [Concomitant]

REACTIONS (2)
  - Neutropenia [None]
  - Arthritis bacterial [None]
